FAERS Safety Report 20623126 (Version 2)
Quarter: 2022Q1

REPORT INFORMATION
  Report Type: Report from Study
  Country: US (occurrence: US)
  Receive Date: 20220322
  Receipt Date: 20220329
  Transmission Date: 20220423
  Serious: Yes (Other)
  Sender: FDA-Public Use
  Company Number: US-APELLIS-01002

PATIENT
  Age: 37 Year
  Sex: Male
  Weight: 97.4 kg

DRUGS (23)
  1. EMPAVELI [Suspect]
     Active Substance: PEGCETACOPLAN
     Indication: Paroxysmal nocturnal haemoglobinuria
     Route: 058
     Dates: start: 202110
  2. EMPAVELI [Suspect]
     Active Substance: PEGCETACOPLAN
     Indication: Paroxysmal nocturnal haemoglobinuria
     Route: 058
     Dates: start: 20211006
  3. EMPAVELI [Suspect]
     Active Substance: PEGCETACOPLAN
     Indication: Paroxysmal nocturnal haemoglobinuria
     Route: 058
     Dates: start: 20211013
  4. 184614 (GLOBALC3Sep21): Folic acid [Concomitant]
     Indication: Product used for unknown indication
  5. 100171 (GLOBALC3Sep21): Vitamin B12 [Concomitant]
     Indication: Product used for unknown indication
     Route: 048
  6. 4151141 (GLOBALC3Sep21): Wheat grass [Concomitant]
     Indication: Product used for unknown indication
  7. 2986593 (GLOBALC3Sep21): Vitamin D [Concomitant]
     Indication: Product used for unknown indication
  8. 3260936 (GLOBALC3Sep21): Matcha powder [Concomitant]
     Indication: Product used for unknown indication
  9. 709560 (GLOBALC3Sep21): Pencillin VK [Concomitant]
     Indication: Product used for unknown indication
  10. 20164 (GLOBALC3Sep21): Medical Marijuana [Concomitant]
     Indication: Product used for unknown indication
     Route: 055
  11. 27407 (GLOBALC3Sep21): Cyclobenzaprine [Concomitant]
     Indication: Product used for unknown indication
     Route: 048
  12. 100803 (GLOBALC3Sep21): Klonopin [Concomitant]
     Indication: Product used for unknown indication
     Route: 048
  13. 2406383 (GLOBALC3Sep21): Olanzapine [Concomitant]
     Indication: Product used for unknown indication
     Route: 048
  14. 1805215 (GLOBALC3Sep21): Sodium polystyrene sulfonate 15g/60 ML [Concomitant]
     Indication: Product used for unknown indication
     Route: 048
  15. 78277 (GLOBALC3Sep21): Loperamide [Concomitant]
     Indication: Product used for unknown indication
     Route: 048
  16. 3069859 (GLOBALC3Sep21): Metoclopramide [Concomitant]
     Indication: Product used for unknown indication
     Route: 048
  17. 1692462 (GLOBALC3Sep21): Ondansetron [Concomitant]
     Indication: Product used for unknown indication
     Route: 048
  18. 1610535 (GLOBALC3Sep21): Polyethylene glycol 3350 [Concomitant]
     Indication: Product used for unknown indication
     Route: 048
  19. 3359538 (GLOBALC3Sep21): Vitamin C plus Zinc [Concomitant]
     Indication: Product used for unknown indication
     Route: 048
  20. 1328876 (GLOBALC3Sep21): Vitamin D3 [Concomitant]
     Indication: Product used for unknown indication
     Route: 048
  21. 1111724 (GLOBALC3Sep21): Lorazepam [Concomitant]
     Indication: Product used for unknown indication
  22. 62768 (GLOBALC3Sep21): Imitrex [Concomitant]
     Indication: Product used for unknown indication
  23. 1325634 (GLOBALC3Sep21): Cyclosporine [Concomitant]
     Indication: Product used for unknown indication

REACTIONS (10)
  - Lymph node abscess [Recovered/Resolved]
  - Nausea [Unknown]
  - Vomiting [Unknown]
  - Infusion site bruising [Unknown]
  - Infusion site swelling [Unknown]
  - Blood creatinine increased [Recovered/Resolved]
  - Blood potassium increased [Recovered/Resolved]
  - Drug ineffective [Not Recovered/Not Resolved]
  - Infusion site pruritus [Unknown]
  - Infusion site pain [Recovered/Resolved]

NARRATIVE: CASE EVENT DATE: 20211001
